FAERS Safety Report 9262316 (Version 1)
Quarter: 2013Q2

REPORT INFORMATION
  Report Type: Spontaneous
  Country: US (occurrence: None)
  Receive Date: 20130425
  Receipt Date: 20130425
  Transmission Date: 20140414
  Serious: Yes (Other)
  Sender: FDA-Public Use
  Company Number: None

PATIENT
  Age: 49 Year
  Sex: Female
  Weight: 120 kg

DRUGS (27)
  1. METHADONE [Suspect]
     Indication: PAIN
     Dosage: TAKING PRIOR TO ADMIT
     Route: 048
  2. GABAPENTIN [Suspect]
     Indication: FIBROMYALGIA
     Dosage: TAKING PRIOR TO ADMIT
     Route: 048
  3. ALBUTEROL/IPRATROPIUM NEB [Concomitant]
  4. AMYLASE-LIPASE-PROTEASE [Concomitant]
  5. ASPIRIN [Concomitant]
  6. AZITHROMYIN [Concomitant]
  7. CITALOPRAM [Concomitant]
  8. DIVALPROEX [Concomitant]
  9. ENOXAPARIN [Concomitant]
  10. FLUTICASONE/SALMETEROL [Concomitant]
  11. FUROSEMIDE [Concomitant]
  12. GLIMIPERIDE [Concomitant]
  13. INSULIN ASPART [Concomitant]
  14. INSULIN GLARGINE [Concomitant]
  15. ISOSORBIDE DINITRATE [Concomitant]
  16. LISINOPRIL [Concomitant]
  17. METFORMIN [Concomitant]
  18. METOCLOPRAMIDE [Concomitant]
  19. METOPROLOL [Concomitant]
  20. NICOTINE PATICH [Concomitant]
  21. PANTOPRAZOLE [Concomitant]
  22. PREDNISONE [Concomitant]
  23. SIMVASTATIN [Concomitant]
  24. TIOTROPIUM [Concomitant]
  25. TRAZODONE [Concomitant]
  26. ZIPRASIDONE [Concomitant]
  27. KCL [Concomitant]

REACTIONS (7)
  - Chronic obstructive pulmonary disease [None]
  - Pneumonitis [None]
  - Lethargy [None]
  - Mental status changes [None]
  - Hypoxia [None]
  - Hyperventilation [None]
  - Blood sodium decreased [None]
